FAERS Safety Report 12435394 (Version 1)
Quarter: 2016Q2

REPORT INFORMATION
  Report Type: Spontaneous
  Country: US (occurrence: US)
  Receive Date: 20160603
  Receipt Date: 20160603
  Transmission Date: 20160815
  Serious: No
  Sender: FDA-Public Use
  Company Number: US-ROCHE-1549344

PATIENT
  Age: 62 Year
  Sex: Male
  Weight: 98.52 kg

DRUGS (5)
  1. XELODA [Suspect]
     Active Substance: CAPECITABINE
     Route: 048
  2. XELODA [Suspect]
     Active Substance: CAPECITABINE
     Dosage: 3000 MG
     Route: 048
  3. XELODA [Suspect]
     Active Substance: CAPECITABINE
     Dosage: 4 TABLETS, CAPECITABINE THERAPY ON HOLD
     Route: 048
     Dates: start: 20141222, end: 20150625
  4. XELODA [Suspect]
     Active Substance: CAPECITABINE
     Indication: RECTAL CANCER
     Dosage: CAPECITABINE THERAPY ON HOLD
     Route: 048
     Dates: start: 20141219
  5. XELODA [Suspect]
     Active Substance: CAPECITABINE
     Dosage: 4 BID
     Route: 048
     Dates: start: 20141219

REACTIONS (8)
  - Pigmentation disorder [Unknown]
  - Diarrhoea [Unknown]
  - Paranoia [Unknown]
  - Pain in extremity [Unknown]
  - Nausea [Unknown]
  - Vomiting [Unknown]
  - Burning sensation [Not Recovered/Not Resolved]
  - Palmar-plantar erythrodysaesthesia syndrome [Not Recovered/Not Resolved]

NARRATIVE: CASE EVENT DATE: 20150625
